FAERS Safety Report 13002667 (Version 1)
Quarter: 2016Q4

REPORT INFORMATION
  Report Type: Spontaneous
  Country: GB (occurrence: GB)
  Receive Date: 20161206
  Receipt Date: 20161206
  Transmission Date: 20170207
  Serious: Yes (Hospitalization)
  Sender: FDA-Public Use
  Company Number: GB-PURDUE-GBR-2016-0042076

PATIENT
  Sex: Female

DRUGS (8)
  1. TARGINACT [Suspect]
     Active Substance: NALOXONE HYDROCHLORIDE\OXYCODONE HYDROCHLORIDE
     Indication: RHEUMATIC DISORDER
     Dosage: 20 MG, TID
     Route: 048
  2. TARGINACT [Interacting]
     Active Substance: NALOXONE HYDROCHLORIDE\OXYCODONE HYDROCHLORIDE
     Dosage: 70 MG, DAILY [25, 20, 25]
     Route: 048
  3. MELOXICAM. [Concomitant]
     Active Substance: MELOXICAM
     Indication: ANTIINFLAMMATORY THERAPY
     Route: 048
  4. VITAMINS                           /90003601/ [Concomitant]
     Active Substance: VITAMINS
  5. TARGINACT [Interacting]
     Active Substance: NALOXONE HYDROCHLORIDE\OXYCODONE HYDROCHLORIDE
     Dosage: 25 MG, TID
     Route: 048
  6. NSAID^S [Suspect]
     Active Substance: UNSPECIFIED INGREDIENT
     Indication: PRODUCT USED FOR UNKNOWN INDICATION
     Dosage: UNK
     Route: 065
  7. DAKTARIN                           /00310801/ [Interacting]
     Active Substance: MICONAZOLE NITRATE
     Indication: PRODUCT USED FOR UNKNOWN INDICATION
     Route: 065
  8. NUROFEN FOR CHILDREN MELTLETS [Concomitant]
     Indication: ANTIINFLAMMATORY THERAPY
     Route: 048

REACTIONS (11)
  - Hyperhidrosis [Unknown]
  - Adverse event [Unknown]
  - Circumstance or information capable of leading to medication error [Unknown]
  - Palpitations [Unknown]
  - Malabsorption [Unknown]
  - Drug prescribing error [Unknown]
  - Pain [Unknown]
  - Drug interaction [Unknown]
  - Unevaluable event [Unknown]
  - Drug withdrawal syndrome [Unknown]
  - Malaise [Unknown]
